FAERS Safety Report 5116803-4 (Version None)
Quarter: 2006Q3

REPORT INFORMATION
  Report Type: 
  Country: None (occurrence: None)
  Receive Date: 20060925
  Receipt Date: 20060914
  Transmission Date: 20061208
  Serious: Yes (Hospitalization, Other)
  Sender: FDA-Public Use
  Company Number: 2006111825

PATIENT
  Age: 30 Year
  Sex: Female

DRUGS (6)
  1. ZOLOFT [Suspect]
     Indication: DRUG USE FOR UNKNOWN INDICATION
  2. LAMICTAL [Suspect]
     Indication: BIPOLAR DISORDER
     Dosage: 24 MG, ORAL
     Route: 048
     Dates: start: 20060629, end: 20060701
  3. ABILIFY [Suspect]
     Indication: DRUG USE FOR UNKNOWN INDICATION
     Dosage: UNK (30 MG)
  4. XANAX [Concomitant]
  5. LITHOBID [Concomitant]
  6. AMBIEN [Concomitant]

REACTIONS (8)
  - ANAPHYLACTIC REACTION [None]
  - EXCORIATION [None]
  - GENERALISED OEDEMA [None]
  - RASH ERYTHEMATOUS [None]
  - RESPIRATORY DISTRESS [None]
  - SKIN LESION [None]
  - STEVENS-JOHNSON SYNDROME [None]
  - STOMATITIS [None]
